FAERS Safety Report 12893350 (Version 1)
Quarter: 2016Q4

REPORT INFORMATION
  Report Type: Spontaneous
  Country: US (occurrence: US)
  Receive Date: 20161027
  Receipt Date: 20161027
  Transmission Date: 20170207
  Serious: No
  Sender: FDA-Public Use
  Company Number: None

PATIENT
  Age: 64 Year
  Sex: Female
  Weight: 65.4 kg

DRUGS (2)
  1. VANCOMYCIN 1G FRESENIUS KABI [Suspect]
     Active Substance: VANCOMYCIN
     Indication: THERAPEUTIC PROCEDURE
     Route: 042
     Dates: start: 20161018, end: 20161026
  2. VANCOMYCIN 1G FRESENIUS KABI [Suspect]
     Active Substance: VANCOMYCIN
     Indication: DEVICE RELATED INFECTION
     Route: 042
     Dates: start: 20161018, end: 20161026

REACTIONS (3)
  - Device malfunction [None]
  - Incorrect drug administration rate [None]
  - Nausea [None]

NARRATIVE: CASE EVENT DATE: 20161024
